FAERS Safety Report 6097731-7 (Version None)
Quarter: 2009Q1

REPORT INFORMATION
  Report Type: 
  Country: None (occurrence: None)
  Receive Date: 20090227
  Receipt Date: 20090219
  Transmission Date: 20090719
  Serious: Yes (Life-Threatening, Hospitalization)
  Sender: FDA-Public Use
  Company Number: JP-MERCK-0812USA04220

PATIENT
  Age: 43 Year
  Sex: Male

DRUGS (14)
  1. ISENTRESS [Suspect]
     Indication: HIV INFECTION
     Route: 048
     Dates: start: 20080821, end: 20080929
  2. ISENTRESS [Suspect]
     Route: 048
     Dates: start: 20081031, end: 20081208
  3. TRUVADA [Suspect]
     Indication: HIV INFECTION
     Route: 048
     Dates: start: 20080630, end: 20081208
  4. LIVACT [Concomitant]
     Indication: HEPATIC FUNCTION ABNORMAL
     Route: 048
     Dates: start: 20080625, end: 20081208
  5. LIVACT [Concomitant]
     Indication: SUPPLEMENTATION THERAPY
     Route: 048
     Dates: start: 20080625, end: 20081208
  6. SELBEX [Concomitant]
     Route: 048
  7. ALLELOCK [Concomitant]
     Route: 048
  8. FUROSEMIDE [Concomitant]
     Indication: OEDEMA
     Route: 048
     Dates: start: 20080827, end: 20081208
  9. ALDACTONE [Concomitant]
     Indication: OEDEMA
     Route: 048
     Dates: start: 20080827, end: 20081208
  10. URSO 250 [Concomitant]
     Indication: HEPATIC FUNCTION ABNORMAL
     Route: 048
     Dates: start: 20080625, end: 20081208
  11. NEOPHAGEN INJECTION [Concomitant]
     Indication: JAUNDICE
     Route: 042
     Dates: start: 20080808, end: 20081208
  12. NEOPHAGEN INJECTION [Concomitant]
     Indication: HEPATIC ENZYME INCREASED
     Route: 042
     Dates: start: 20080808, end: 20081208
  13. NOVACT M [Concomitant]
     Indication: HAEMORRHAGIC DISORDER
     Route: 042
     Dates: start: 20080625, end: 20081208
  14. NOVACT M [Concomitant]
     Indication: PROPHYLAXIS
     Route: 042
     Dates: start: 20080625, end: 20081208

REACTIONS (1)
  - JAUNDICE [None]
